FAERS Safety Report 8433571-9 (Version None)
Quarter: 2012Q2

REPORT INFORMATION
  Report Type: 
  Country: None (occurrence: None)
  Receive Date: 20120613
  Receipt Date: 20120531
  Transmission Date: 20120825
  Serious: Yes (Other)
  Sender: FDA-Public Use
  Company Number: FR-PFIZER INC-2012111807

PATIENT
  Age: 76 Year
  Sex: Male

DRUGS (1)
  1. ARGATROBAN [Suspect]
     Indication: HEPARIN-INDUCED THROMBOCYTOPENIA
     Dosage: 2850 MICROG/H, (1 IN 1 D)
     Route: 042

REACTIONS (2)
  - PROTHROMBIN TIME SHORTENED [None]
  - COAGULATION FACTOR V LEVEL DECREASED [None]
